FAERS Safety Report 13689873 (Version 4)
Quarter: 2018Q2

REPORT INFORMATION
  Report Type: Report from Study
  Country: US (occurrence: US)
  Receive Date: 20170626
  Receipt Date: 20180403
  Transmission Date: 20180711
  Serious: Yes (Hospitalization, Other)
  Sender: FDA-Public Use
  Company Number: US-GILEAD-2017-0280086

PATIENT
  Age: 45 Year
  Sex: Female

DRUGS (5)
  1. AMBRISENTAN [Suspect]
     Active Substance: AMBRISENTAN
     Indication: PRODUCT USED FOR UNKNOWN INDICATION
     Dosage: 10 MG, QD
     Route: 065
     Dates: start: 20130114
  2. UPTRAVI [Concomitant]
     Active Substance: SELEXIPAG
     Dosage: 1600 UG, BID
     Dates: start: 20180108
  3. UPTRAVI [Concomitant]
     Active Substance: SELEXIPAG
     Dosage: UNK
  4. ADCIRCA [Concomitant]
     Active Substance: TADALAFIL
  5. XARELTO [Concomitant]
     Active Substance: RIVAROXABAN

REACTIONS (19)
  - Palpitations [Unknown]
  - Fatigue [Unknown]
  - Depressed mood [Unknown]
  - Lower limb fracture [Unknown]
  - Presyncope [Unknown]
  - General physical health deterioration [Not Recovered/Not Resolved]
  - Fall [Unknown]
  - Oxygen saturation decreased [Unknown]
  - Heart rate decreased [Unknown]
  - Hypotension [Unknown]
  - Dependence [Unknown]
  - Chest pain [Unknown]
  - Stress [Not Recovered/Not Resolved]
  - Dyspnoea at rest [Not Recovered/Not Resolved]
  - Malaise [Unknown]
  - Pain [Unknown]
  - Oxygen consumption increased [Not Recovered/Not Resolved]
  - Frustration tolerance decreased [Unknown]
  - Dyspnoea exertional [Not Recovered/Not Resolved]

NARRATIVE: CASE EVENT DATE: 201706
